FAERS Safety Report 12520823 (Version 2)
Quarter: 2016Q3

REPORT INFORMATION
  Report Type: Spontaneous
  Country: US (occurrence: US)
  Receive Date: 20160701
  Receipt Date: 20160808
  Transmission Date: 20161109
  Serious: No
  Sender: FDA-Public Use
  Company Number: US-PFIZER INC-2016310592

PATIENT
  Age: 68 Year
  Sex: Female

DRUGS (2)
  1. METHOTREXATE SODIUM. [Suspect]
     Active Substance: METHOTREXATE SODIUM
     Indication: RHEUMATOID ARTHRITIS
     Dosage: 7 DF, WEEKLY (7 TABLET Q WEEK)
     Dates: start: 2000
  2. PREDNISONE. [Suspect]
     Active Substance: PREDNISONE
     Indication: RHEUMATOID ARTHRITIS
     Dosage: 7.5 MG, 1X/DAY (7 1/2 MG A DAY)
     Dates: start: 2000

REACTIONS (6)
  - Glossitis [Recovered/Resolved]
  - Oropharyngeal pain [Recovered/Resolved]
  - Anger [Unknown]
  - Glossodynia [Recovered/Resolved]
  - Asthenia [Not Recovered/Not Resolved]
  - Throat irritation [Recovered/Resolved]

NARRATIVE: CASE EVENT DATE: 20160716
